FAERS Safety Report 13913140 (Version 1)
Quarter: 2017Q3

REPORT INFORMATION
  Report Type: Spontaneous
  Country: US (occurrence: US)
  Receive Date: 20170828
  Receipt Date: 20170828
  Transmission Date: 20171127
  Serious: No
  Sender: FDA-Public Use
  Company Number: US-ROCHE-1124134

PATIENT
  Sex: Male
  Weight: 14.98 kg

DRUGS (1)
  1. NUTROPIN AQ [Suspect]
     Active Substance: SOMATROPIN
     Indication: GROWTH HORMONE DEFICIENCY
     Dosage: DOSE PER INJECTION: 0.12ML, 0.50CC, 0.04MG/KG/DOSE
     Route: 058
     Dates: start: 199912

REACTIONS (2)
  - Pain [Unknown]
  - Musculoskeletal chest pain [Unknown]
